FAERS Safety Report 7804916-5 (Version None)
Quarter: 2011Q4

REPORT INFORMATION
  Report Type: 
  Country: None (occurrence: None)
  Receive Date: 20111010
  Receipt Date: 20111004
  Transmission Date: 20120403
  Serious: Yes (Hospitalization)
  Sender: FDA-Public Use
  Company Number: FR-BRISTOL-MYERS SQUIBB COMPANY-16138893

PATIENT
  Age: 39 Year
  Sex: Male

DRUGS (1)
  1. REYATAZ [Suspect]
     Indication: HIV INFECTION
     Dosage: BETWEEN FEB06-JUN06.
     Route: 048
     Dates: start: 20060201, end: 20110926

REACTIONS (1)
  - RENAL COLIC [None]
